FAERS Safety Report 19214620 (Version 1)
Quarter: 2021Q2

REPORT INFORMATION
  Report Type: Spontaneous
  Country: MX (occurrence: MX)
  Receive Date: 20210504
  Receipt Date: 20210504
  Transmission Date: 20210717
  Serious: Yes (Hospitalization, Other)
  Sender: FDA-Public Use
  Company Number: MX-AMGEN-MEXSP2021064395

PATIENT

DRUGS (3)
  1. CALCIUM [Concomitant]
     Active Substance: CALCIUM
  2. VITAMIN D [COLECALCIFEROL] [Concomitant]
     Active Substance: CHOLECALCIFEROL
  3. PROLIA [Suspect]
     Active Substance: DENOSUMAB
     Indication: OSTEOPOROSIS
     Dosage: UNK
     Route: 065

REACTIONS (8)
  - Hip fracture [Unknown]
  - Rib fracture [Unknown]
  - Ankle fracture [Unknown]
  - Spinal fracture [Unknown]
  - Radius fracture [Unknown]
  - Fracture [Unknown]
  - Humerus fracture [Unknown]
  - Pathological fracture [Unknown]
